FAERS Safety Report 13278562 (Version 1)
Quarter: 2017Q1

REPORT INFORMATION
  Report Type: Spontaneous
  Country: US (occurrence: US)
  Receive Date: 20170228
  Receipt Date: 20170228
  Transmission Date: 20170428
  Serious: No
  Sender: FDA-Public Use
  Company Number: US-BIOGEN-2017BI00361688

PATIENT
  Sex: Male

DRUGS (1)
  1. TYSABRI [Suspect]
     Active Substance: NATALIZUMAB
     Indication: MULTIPLE SCLEROSIS
     Route: 065
     Dates: start: 20120712, end: 20130613

REACTIONS (3)
  - Cognitive disorder [Recovered/Resolved]
  - Dysphonia [Not Recovered/Not Resolved]
  - Gait disturbance [Recovered/Resolved]
